FAERS Safety Report 4883885-4 (Version None)
Quarter: 2006Q1

REPORT INFORMATION
  Report Type: 
  Country: None (occurrence: None)
  Receive Date: 20060113
  Receipt Date: 20060103
  Transmission Date: 20060701
  Serious: Yes (Hospitalization)
  Sender: FDA-Public Use
  Company Number: WAES 0512GBR00027

PATIENT
  Age: 63 Year
  Sex: Male

DRUGS (6)
  1. VIOXX [Suspect]
     Indication: NEOPLASM PROPHYLAXIS
     Dosage: 25 MG, DAILY; PO
     Route: 048
     Dates: start: 20040122, end: 20041001
  2. ACETAMINOPHEN [Concomitant]
  3. ASPIRIN [Concomitant]
  4. BENDROFLUMETHIAZIDE [Concomitant]
  5. DOCUSATE CA [Concomitant]
  6. SIMVASTATIN [Concomitant]

REACTIONS (2)
  - COLONIC POLYP [None]
  - COLORECTAL CANCER [None]
